FAERS Safety Report 8758827 (Version 1)
Quarter: 2012Q4

REPORT INFORMATION
  Report Type: 
  Country: NL (occurrence: NL)
  Receive Date: 20120829
  Receipt Date: 20120829
  Transmission Date: 20130627
  Serious: Yes (Hospitalization)
  Sender: FDA-Public Use
  Company Number: PHHY2012NL074217

PATIENT
  Age: 87 Year
  Sex: Male

DRUGS (2)
  1. ZOMETA [Suspect]
     Indication: PROSTATE CANCER METASTATIC
     Dosage: 4 mg/100ml,  1x per 28 days
     Dates: start: 20120607
  2. ZOMETA [Suspect]
     Dosage: 4 mg/100ml,  1x per 28 days
     Dates: start: 20120730

REACTIONS (2)
  - Prostatic haemorrhage [Recovered/Resolved]
  - Blood urine present [Recovered/Resolved]
